FAERS Safety Report 13358268 (Version 1)
Quarter: 2017Q1

REPORT INFORMATION
  Report Type: Spontaneous
  Country: US (occurrence: US)
  Receive Date: 20170321
  Receipt Date: 20170321
  Transmission Date: 20170429
  Serious: Yes (Disabling)
  Sender: FDA-Public Use
  Company Number: None

PATIENT
  Age: 28 Year
  Sex: Female
  Weight: 128.2 kg

DRUGS (5)
  1. IBUPROFEN. [Concomitant]
     Active Substance: IBUPROFEN
  2. TYLENOL [Concomitant]
     Active Substance: ACETAMINOPHEN
  3. HEATING PAD [Concomitant]
  4. LILETTA [Suspect]
     Active Substance: LEVONORGESTREL
     Indication: POLYCYSTIC OVARIES
     Dosage: ?          QUANTITY:1 DEVICE;OTHER FREQUENCY:3-5 YEARS;OTHER ROUTE:INSERTED BY DOCTOR?
     Dates: start: 20161018, end: 20161120
  5. LILETTA [Suspect]
     Active Substance: LEVONORGESTREL
     Indication: ENDOMETRIOSIS
     Dosage: ?          QUANTITY:1 DEVICE;OTHER FREQUENCY:3-5 YEARS;OTHER ROUTE:INSERTED BY DOCTOR?
     Dates: start: 20161018, end: 20161120

REACTIONS (3)
  - Muscle spasms [None]
  - Vaginal haemorrhage [None]
  - Hot flush [None]

NARRATIVE: CASE EVENT DATE: 20161019
